FAERS Safety Report 5762348-8 (Version None)
Quarter: 2008Q2

REPORT INFORMATION
  Report Type: 
  Country: None (occurrence: None)
  Receive Date: 20080609
  Receipt Date: 20080604
  Transmission Date: 20081010
  Serious: Yes (Death)
  Sender: FDA-Public Use
  Company Number: DE-NOVOPROD-276022

PATIENT
  Age: 5 Day
  Sex: Male
  Weight: 0.98 kg

DRUGS (2)
  1. NOVOSEVEN [Suspect]
     Indication: GASTROINTESTINAL HAEMORRHAGE
     Dosage: 120 UG/KG, UNK
     Route: 042
  2. NOVOSEVEN [Suspect]
     Dosage: 200 UG/KG, UNK
     Route: 042

REACTIONS (1)
  - DRUG INEFFECTIVE [None]
